FAERS Safety Report 16973587 (Version 3)
Quarter: 2021Q2

REPORT INFORMATION
  Report Type: Spontaneous
  Country: US (occurrence: US)
  Receive Date: 20191030
  Receipt Date: 20210514
  Transmission Date: 20210716
  Serious: Yes (Other)
  Sender: FDA-Public Use
  Company Number: US-PFIZER INC-2019464696

PATIENT
  Age: 68 Year
  Sex: Female
  Weight: 65.76 kg

DRUGS (1)
  1. XELJANZ [Suspect]
     Active Substance: TOFACITINIB CITRATE
     Indication: RHEUMATOID ARTHRITIS
     Dosage: 5 MG, 2X/DAY
     Dates: start: 201901

REACTIONS (4)
  - Rotator cuff syndrome [Unknown]
  - Musculoskeletal discomfort [Unknown]
  - Blood cholesterol abnormal [Recovered/Resolved]
  - Ankle fracture [Unknown]

NARRATIVE: CASE EVENT DATE: 20190920
